FAERS Safety Report 5958393-X (Version None)
Quarter: 2008Q4

REPORT INFORMATION
  Report Type: 
  Country: None (occurrence: None)
  Receive Date: 20081119
  Receipt Date: 20081113
  Transmission Date: 20090506
  Serious: No
  Sender: FDA-Public Use
  Company Number: NL-ASTRAZENECA-2008AC02955

PATIENT
  Age: 27714 Day
  Sex: Female

DRUGS (5)
  1. SEROQUEL [Suspect]
     Indication: DISTURBANCE IN SOCIAL BEHAVIOUR
     Route: 048
     Dates: start: 20080916, end: 20081024
  2. DEPAKENE [Suspect]
     Indication: DISTURBANCE IN SOCIAL BEHAVIOUR
     Route: 048
     Dates: start: 20081016
  3. SINEMET CR [Suspect]
     Indication: PARKINSONISM
     Route: 048
     Dates: start: 20010101
  4. OXAZEPAM SANDOZ [Concomitant]
     Route: 048
     Dates: start: 20080828
  5. ACETAMINOPHEN [Concomitant]
     Route: 048
     Dates: start: 20080929

REACTIONS (1)
  - NEUTROPENIA [None]
